FAERS Safety Report 4619222-X (Version None)
Quarter: 2005Q1

REPORT INFORMATION
  Report Type: 
  Country: None (occurrence: None)
  Receive Date: 20050318
  Receipt Date: 20050318
  Transmission Date: 20050727
  Serious: Yes (Hospitalization)
  Sender: FDA-Public Use
  Company Number: None

PATIENT
  Sex: Male
  Weight: 61.2356 kg

DRUGS (5)
  1. VICODIN [Suspect]
     Indication: PAIN MANAGEMENT
     Dosage: PO [PRIOR TO ADMISSION]
     Route: 048
  2. DURAGESIC-100 [Concomitant]
  3. CASODEX [Concomitant]
  4. OXYCODONE [Concomitant]
  5. STOOL SOFTENER [Concomitant]

REACTIONS (2)
  - DIZZINESS [None]
  - NAUSEA [None]
